FAERS Safety Report 7634910-9 (Version None)
Quarter: 2011Q3

REPORT INFORMATION
  Report Type: 
  Country: None (occurrence: None)
  Receive Date: 20110726
  Receipt Date: 20110718
  Transmission Date: 20111222
  Serious: Yes (Other)
  Sender: FDA-Public Use
  Company Number: US-ASTRAZENECA-2009SE09812

PATIENT
  Age: 33 Year
  Sex: Female

DRUGS (12)
  1. TRAMADOL HCL [Concomitant]
     Route: 048
     Dates: start: 20071107
  2. LAMICTAL [Concomitant]
     Dosage: 25 MG TK 2 TS PO QD
     Route: 048
     Dates: start: 20050118
  3. SEROQUEL [Suspect]
     Route: 048
     Dates: start: 20041201
  4. SEROQUEL [Suspect]
     Route: 048
     Dates: start: 20071121
  5. PRILOSEC [Concomitant]
     Route: 048
     Dates: start: 20071107
  6. CYMBALTA [Concomitant]
     Dates: start: 20060918
  7. OMEPRAZOLE [Concomitant]
     Route: 048
     Dates: start: 20050127
  8. TRAMADOL HCL [Concomitant]
     Dosage: 50-100 QD PRN
     Dates: start: 20061009
  9. CYMBALTA [Concomitant]
     Route: 048
     Dates: start: 20071107
  10. SEROQUEL [Suspect]
     Dosage: DECREASE SEROQUEL TO 100 MG AT NIGHT
     Route: 048
     Dates: start: 20070823
  11. METOCLOPRAMIDE [Concomitant]
     Dosage: ONCE DAILY
     Dates: start: 20070510
  12. MOBIC [Concomitant]
     Route: 048
     Dates: start: 20040715

REACTIONS (2)
  - DIABETIC GASTROPARESIS [None]
  - TYPE 2 DIABETES MELLITUS [None]
